FAERS Safety Report 22359282 (Version 1)
Quarter: 2023Q2

REPORT INFORMATION
  Report Type: Spontaneous
  Country: FR (occurrence: FR)
  Receive Date: 20230524
  Receipt Date: 20230524
  Transmission Date: 20230721
  Serious: Yes (Hospitalization)
  Sender: FDA-Public Use
  Company Number: None

PATIENT

DRUGS (6)
  1. INCRUSE ELLIPTA [Suspect]
     Active Substance: UMECLIDINIUM BROMIDE
     Indication: Chronic obstructive pulmonary disease
     Dosage: 1 DF, BID
     Route: 055
  2. FLUTICASONE FUROATE\VILANTEROL TRIFENATATE [Suspect]
     Active Substance: FLUTICASONE FUROATE\VILANTEROL TRIFENATATE
     Indication: Chronic obstructive pulmonary disease
     Dosage: 1 DF, BID
     Route: 055
  3. TERBUTALINE SULFATE [Suspect]
     Active Substance: TERBUTALINE SULFATE
     Indication: Chronic obstructive pulmonary disease
     Dosage: 1 DF, BID
     Route: 055
  4. ATROPINE [Suspect]
     Active Substance: ATROPINE
     Indication: Scan myocardial perfusion
     Dosage: 0.25 MG
     Route: 042
     Dates: start: 20230330, end: 20230330
  5. DOBUTAMINE HYDROCHLORIDE [Suspect]
     Active Substance: DOBUTAMINE HYDROCHLORIDE
     Indication: Scan myocardial perfusion
     Dosage: 10 ?G/KG
     Route: 042
     Dates: start: 20230330, end: 20230330
  6. IPRATROPIUM BROMIDE ANHYDROUS [Suspect]
     Active Substance: IPRATROPIUM BROMIDE ANHYDROUS
     Indication: Chronic obstructive pulmonary disease
     Dosage: 1 DF, BID
     Route: 055

REACTIONS (1)
  - Stress cardiomyopathy [Recovered/Resolved]

NARRATIVE: CASE EVENT DATE: 20230330
